FAERS Safety Report 4280858-X (Version None)
Quarter: 2004Q1

REPORT INFORMATION
  Report Type: 
  Country: None (occurrence: None)
  Receive Date: 20040127
  Receipt Date: 20040116
  Transmission Date: 20041129
  Serious: Yes (Hospitalization)
  Sender: FDA-Public Use
  Company Number: HQWYE465019JAN04

PATIENT
  Age: 55 Year
  Sex: Male

DRUGS (11)
  1. RAPAMUNE [Suspect]
     Indication: RENAL TRANSPLANT
     Dosage: 7 MG 1X PER 1 DAY ORAL
     Route: 048
     Dates: start: 20020701, end: 20030101
  2. CELLCEPT [Concomitant]
  3. PREDNISONE [Concomitant]
  4. CALCIMAGON (CALCIUM CARBONATE/COLECALCIFEROL) [Concomitant]
  5. BACTRIM [Concomitant]
  6. METOPROLOL SUCCINATE [Concomitant]
  7. ASPIRIN [Concomitant]
  8. ATORVASTATIN CALCIUM [Concomitant]
  9. SURMONTIL [Concomitant]
  10. SYMBICORT (BUDESONIDE/FORMOTEROL FUMARATE) [Concomitant]
  11. HUMALOG [Concomitant]

REACTIONS (8)
  - BLOOD CREATININE INCREASED [None]
  - BRONCHIOLITIS [None]
  - LUNG DISORDER [None]
  - LUNG INFILTRATION [None]
  - PULMONARY GRANULOMA [None]
  - PULMONARY NECROSIS [None]
  - PULMONARY VASCULAR DISORDER [None]
  - WEGENER'S GRANULOMATOSIS [None]
